FAERS Safety Report 6815251-6 (Version None)
Quarter: 2010Q3

REPORT INFORMATION
  Report Type: 
  Country: None (occurrence: None)
  Receive Date: 20100701
  Receipt Date: 20100701
  Transmission Date: 20110219
  Serious: No
  Sender: FDA-Public Use
  Company Number: None

PATIENT
  Age: 60 Year
  Sex: Male

DRUGS (2)
  1. PIOGLITAZONE [Suspect]
     Dosage: 15 MG EVERY DAY PO
     Route: 048
     Dates: start: 20091020, end: 20100608
  2. DRONEDARONE HCL [Suspect]
     Dosage: 400 MG BID PO
     Route: 048
     Dates: start: 20100406

REACTIONS (7)
  - COUGH [None]
  - DIARRHOEA [None]
  - DRUG INTERACTION [None]
  - PRURITUS [None]
  - PYREXIA [None]
  - RASH [None]
  - URTICARIA [None]
